FAERS Safety Report 5284878-8 (Version None)
Quarter: 2007Q1

REPORT INFORMATION
  Report Type: 
  Country: None (occurrence: None)
  Receive Date: 20061229
  Receipt Date: 20060821
  Transmission Date: 20070707
  Serious: Yes (Hospitalization)
  Sender: FDA-Public Use
  Company Number: PHEH2006US10675

PATIENT
  Age: 45 Year
  Sex: Female

DRUGS (5)
  1. CLOZARIL [Suspect]
     Indication: SCHIZOPHRENIA
     Dosage: 300 MG, QD, UNK
     Dates: start: 20060803, end: 20060818
  2. LITHIUM CARBONATE [Concomitant]
  3. ATIVAN [Concomitant]
  4. ANAFRANIL [Concomitant]
  5. SEROQUEL [Concomitant]

REACTIONS (7)
  - AGRANULOCYTOSIS [None]
  - HALLUCINATION, AUDITORY [None]
  - NEUTROPHIL COUNT DECREASED [None]
  - PYREXIA [None]
  - SCHIZOPHRENIA, DISORGANISED TYPE [None]
  - SEDATION [None]
  - WHITE BLOOD CELL COUNT DECREASED [None]
